FAERS Safety Report 18624619 (Version 1)
Quarter: 2020Q4

REPORT INFORMATION
  Report Type: Spontaneous
  Country: CN (occurrence: CN)
  Receive Date: 20201216
  Receipt Date: 20201216
  Transmission Date: 20210114
  Serious: Yes (Other)
  Sender: FDA-Public Use
  Company Number: CN-ASTRAZENECA-2020SF66344

PATIENT
  Age: 10 Year
  Sex: Female
  Weight: 7.5 kg

DRUGS (3)
  1. PULMICORT RESPULES [Suspect]
     Active Substance: BUDESONIDE
     Indication: BRONCHITIS
     Route: 055
     Dates: start: 20201124, end: 20201202
  2. ATROVENT [Concomitant]
     Active Substance: IPRATROPIUM BROMIDE
     Indication: BRONCHITIS
     Route: 055
     Dates: start: 20201124, end: 20201202
  3. XIYNI [Concomitant]
     Indication: BRONCHITIS
     Route: 055
     Dates: start: 20201124, end: 20201202

REACTIONS (2)
  - Aphthous ulcer [Recovering/Resolving]
  - Oropharyngeal candidiasis [Recovering/Resolving]

NARRATIVE: CASE EVENT DATE: 20201202
